FAERS Safety Report 9570820 (Version 1)
Quarter: 2013Q3

REPORT INFORMATION
  Report Type: Spontaneous
  Country: US (occurrence: None)
  Receive Date: 20130926
  Receipt Date: 20130926
  Transmission Date: 20140515
  Serious: No
  Sender: FDA-Public Use
  Company Number: None

PATIENT
  Age: 32 Year
  Sex: Male
  Weight: 92.08 kg

DRUGS (1)
  1. HCG INJECTIONS [Suspect]
     Indication: WEIGHT CONTROL

REACTIONS (1)
  - No adverse event [None]
